FAERS Safety Report 5000341-3 (Version None)
Quarter: 2006Q2

REPORT INFORMATION
  Report Type: 
  Country: None (occurrence: None)
  Receive Date: 20060511
  Receipt Date: 20060201
  Transmission Date: 20061013
  Serious: Yes (Hospitalization)
  Sender: FDA-Public Use
  Company Number: US-MERCK-0602USA00568

PATIENT
  Age: 69 Year
  Sex: Female
  Weight: 81 kg

DRUGS (9)
  1. WARFARIN SODIUM [Concomitant]
     Indication: THROMBOSIS PROPHYLAXIS
     Route: 065
  2. FUROSEMIDE [Concomitant]
     Indication: POLYURIA
     Route: 065
  3. LEVOTHYROXINE SODIUM [Concomitant]
     Indication: THYROID DISORDER
     Route: 065
  4. ZOCOR [Concomitant]
     Indication: BLOOD CHOLESTEROL INCREASED
     Route: 065
  5. PRINIVIL [Concomitant]
     Indication: BLOOD PRESSURE
     Route: 065
  6. PREMPRO [Concomitant]
     Route: 065
  7. TYLENOL (CAPLET) [Concomitant]
     Route: 065
  8. ZOLOFT [Concomitant]
     Route: 065
  9. VIOXX [Suspect]
     Indication: HIP ARTHROPLASTY
     Route: 048
     Dates: start: 20000101, end: 20040101

REACTIONS (3)
  - ATRIAL FIBRILLATION [None]
  - CARDIAC FAILURE [None]
  - MYOCARDIAL INFARCTION [None]
